FAERS Safety Report 10152143 (Version 2)
Quarter: 2014Q2

REPORT INFORMATION
  Report Type: Spontaneous
  Country: JP (occurrence: JP)
  Receive Date: 20140505
  Receipt Date: 20140505
  Transmission Date: 20141212
  Serious: Yes (Life-Threatening, Hospitalization, Other)
  Sender: FDA-Public Use
  Company Number: JP-JNJFOC-20140311269

PATIENT
  Age: 88 Year
  Sex: Female
  Weight: 46 kg

DRUGS (9)
  1. XARELTO [Suspect]
     Indication: CEREBROVASCULAR ACCIDENT PROPHYLAXIS
     Route: 048
     Dates: start: 20140115, end: 20140127
  2. XARELTO [Suspect]
     Indication: CEREBROVASCULAR ACCIDENT PROPHYLAXIS
     Dosage: ROUTE: OTHER
     Route: 048
     Dates: start: 20140207, end: 20140217
  3. XARELTO [Suspect]
     Indication: ATRIAL FIBRILLATION
     Route: 048
     Dates: start: 20140115, end: 20140127
  4. XARELTO [Suspect]
     Indication: ATRIAL FIBRILLATION
     Dosage: ROUTE: OTHER
     Route: 048
     Dates: start: 20140207, end: 20140217
  5. BAYASPIRIN [Interacting]
     Indication: PRODUCT USED FOR UNKNOWN INDICATION
     Route: 050
     Dates: end: 20140127
  6. TAKEPRON [Concomitant]
     Route: 050
  7. LASIX [Concomitant]
     Route: 050
  8. SIMVASTATIN [Concomitant]
     Route: 050
  9. PURSENNID [Concomitant]
     Route: 050

REACTIONS (4)
  - Mallory-Weiss syndrome [Recovering/Resolving]
  - Haematochezia [Unknown]
  - Pneumomediastinum [Recovering/Resolving]
  - Drug interaction [Unknown]
